FAERS Safety Report 10146905 (Version 2)
Quarter: 2014Q2

REPORT INFORMATION
  Report Type: Report from Study
  Country: DE (occurrence: DE)
  Receive Date: 20140501
  Receipt Date: 20140519
  Transmission Date: 20141212
  Serious: Yes (Death, Other)
  Sender: FDA-Public Use
  Company Number: DE-ABBVIE-14P-062-1231683-00

PATIENT
  Age: 76 Year
  Sex: Male

DRUGS (2)
  1. LEUPRORELIN [Suspect]
     Indication: PROSTATE CANCER
     Dates: start: 20120206, end: 20140113
  2. ALL OTHER THERAPEUTIC PRODUCTS [Concomitant]
     Indication: PRODUCT USED FOR UNKNOWN INDICATION

REACTIONS (7)
  - Subdural haematoma [Fatal]
  - Prostate cancer metastatic [Fatal]
  - Sepsis [Fatal]
  - Febrile infection [Fatal]
  - Cardiac failure [Fatal]
  - Multi-organ failure [Fatal]
  - Intestinal haemorrhage [Unknown]
